FAERS Safety Report 7246217-2 (Version None)
Quarter: 2011Q1

REPORT INFORMATION
  Report Type: 
  Country: None (occurrence: None)
  Receive Date: 20110126
  Receipt Date: 20110121
  Transmission Date: 20110831
  Serious: Yes (Hospitalization)
  Sender: FDA-Public Use
  Company Number: B0695801A

PATIENT
  Age: 62 Year
  Sex: Male

DRUGS (1)
  1. AVANDIA [Suspect]
     Indication: RENAL FAILURE
     Dosage: 8MG PER DAY
     Route: 048
     Dates: start: 20050101, end: 20060504

REACTIONS (2)
  - RENAL FAILURE [None]
  - CARDIAC FAILURE CONGESTIVE [None]
